FAERS Safety Report 22208049 (Version 1)
Quarter: 2023Q2

REPORT INFORMATION
  Report Type: Spontaneous
  Country: CA (occurrence: CA)
  Receive Date: 20230413
  Receipt Date: 20230413
  Transmission Date: 20230722
  Serious: Yes (Other)
  Sender: FDA-Public Use
  Company Number: CA-FreseniusKabi-FK202304586

PATIENT
  Age: 40 Year
  Sex: Female

DRUGS (44)
  1. CLINDAMYCIN [Suspect]
     Active Substance: CLINDAMYCIN
     Indication: Lymphadenopathy
     Dosage: DOSAGE FORM NOT SPECIFIED?ROUTE OF ADMIN UNKNOWN
  2. AMOXICILLIN\CLAVULANATE POTASSIUM [Suspect]
     Active Substance: AMOXICILLIN\CLAVULANATE POTASSIUM
     Indication: Lymphadenopathy
     Dosage: ROUTE OF ADMIN UNKNOWN
  3. CYMBALTA [Suspect]
     Active Substance: DULOXETINE HYDROCHLORIDE
     Indication: Product used for unknown indication
     Dosage: FORM OF ADMIN NOT SPECFIFIED?ROUTE OF ADMIN UNKNOWN
  4. CYMBALTA [Suspect]
     Active Substance: DULOXETINE HYDROCHLORIDE
     Dosage: ROUTE OF ADMIN UNKNOWN
  5. OMALIZUMAB [Suspect]
     Active Substance: OMALIZUMAB
     Indication: Chronic spontaneous urticaria
     Dosage: 300 MG?DOSAGE FORM POWDER AND SOLVENT SOLUTION FOR INJECTION
     Route: 058
  6. OMALIZUMAB [Suspect]
     Active Substance: OMALIZUMAB
     Dosage: 300 MG?DOSAGE FORM POWDER AND SOLVENT SOLUTION FOR INJECTION
     Route: 058
  7. OMALIZUMAB [Suspect]
     Active Substance: OMALIZUMAB
     Dosage: 300 MG?DOSAGE FORM POWDER AND SOLVENT SOLUTION FOR INJECTION
     Route: 058
  8. OMALIZUMAB [Suspect]
     Active Substance: OMALIZUMAB
     Dosage: 300 MG?DOSAGE FORM POWDER AND SOLVENT SOLUTION FOR INJECTION
     Route: 058
  9. OMALIZUMAB [Suspect]
     Active Substance: OMALIZUMAB
     Dosage: 300 MG?DOSAGE FORM POWDER AND SOLVENT SOLUTION FOR INJECTION
     Route: 058
  10. OMALIZUMAB [Suspect]
     Active Substance: OMALIZUMAB
     Dosage: DOSAGE FORM POWDER AND SOLVENT SOLUTION FOR INJECTION
     Route: 058
  11. OMALIZUMAB [Suspect]
     Active Substance: OMALIZUMAB
     Dosage: 300 MG?DOSAGE FORM POWDER AND SOLVENT SOLUTION FOR INJECTION
     Route: 058
  12. OMALIZUMAB [Suspect]
     Active Substance: OMALIZUMAB
     Dosage: 300 MG?DOSAGE FORM POWDER AND SOLVENT SOLUTION FOR INJECTION
     Route: 058
  13. OMALIZUMAB [Suspect]
     Active Substance: OMALIZUMAB
     Dosage: DOSAGE FORM POWDER AND SOLVENT SOLUTION FOR INJECTION
     Route: 058
  14. OMALIZUMAB [Suspect]
     Active Substance: OMALIZUMAB
     Dosage: 150 MG?DOSAGE FORM POWDER AND SOLVENT SOLUTION FOR INJECTION
     Route: 058
  15. OMALIZUMAB [Suspect]
     Active Substance: OMALIZUMAB
     Dosage: 300 MG?DOSAGE FORM POWDER AND SOLVENT SOLUTION FOR INJECTION
     Route: 058
  16. OMALIZUMAB [Suspect]
     Active Substance: OMALIZUMAB
     Dosage: 300 MG?DOSAGE FORM POWDER AND SOLVENT SOLUTION FOR INJECTION
     Route: 058
  17. OMALIZUMAB [Suspect]
     Active Substance: OMALIZUMAB
     Dosage: 300 MG?DOSAGE FORM POWDER AND SOLVENT SOLUTION FOR INJECTION
     Route: 058
  18. OMALIZUMAB [Suspect]
     Active Substance: OMALIZUMAB
     Dosage: 300 MG?DOSAGE FORM POWDER AND SOLVENT SOLUTION FOR INJECTION
     Route: 058
  19. OMALIZUMAB [Suspect]
     Active Substance: OMALIZUMAB
     Dosage: 150 MG?DOSAGE FORM POWDER AND SOLVENT SOLUTION FOR INJECTION
     Route: 058
  20. OMALIZUMAB [Suspect]
     Active Substance: OMALIZUMAB
     Dosage: DOSAGE FORM POWDER AND SOLVENT SOLUTION FOR INJECTION
     Route: 058
  21. OMALIZUMAB [Suspect]
     Active Substance: OMALIZUMAB
     Dosage: 300 MG?DOSAGE FORM POWDER AND SOLVENT SOLUTION FOR INJECTION
     Route: 058
  22. OMALIZUMAB [Suspect]
     Active Substance: OMALIZUMAB
     Dosage: 300 MG?DOSAGE FORM POWDER AND SOLVENT SOLUTION FOR INJECTION
     Route: 058
  23. OMALIZUMAB [Suspect]
     Active Substance: OMALIZUMAB
     Dosage: DOSAGE FORM POWDER AND SOLVENT SOLUTION FOR INJECTION
     Route: 058
  24. OMALIZUMAB [Suspect]
     Active Substance: OMALIZUMAB
     Dosage: DOSAGE FORM POWDER AND SOLVENT SOLUTION FOR INJECTION
     Route: 058
  25. OMALIZUMAB [Suspect]
     Active Substance: OMALIZUMAB
     Dosage: DOSAGE FORM POWDER AND SOLVENT SOLUTION FOR INJECTION
     Route: 058
  26. OMALIZUMAB [Suspect]
     Active Substance: OMALIZUMAB
     Dosage: 300 MG?DOSAGE FORM POWDER AND SOLVENT SOLUTION FOR INJECTION
     Route: 058
  27. OMALIZUMAB [Suspect]
     Active Substance: OMALIZUMAB
     Dosage: DOSAGE FORM POWDER AND SOLVENT SOLUTION FOR INJECTION
     Route: 058
  28. OMALIZUMAB [Suspect]
     Active Substance: OMALIZUMAB
     Dosage: DOSAGE FORM POWDER AND SOLVENT SOLUTION FOR INJECTION
     Route: 058
  29. OMALIZUMAB [Suspect]
     Active Substance: OMALIZUMAB
     Dosage: 300 MG?DOSAGE FORM POWDER AND SOLVENT SOLUTION FOR INJECTION
     Route: 058
  30. OMALIZUMAB [Suspect]
     Active Substance: OMALIZUMAB
     Dosage: DOSAGE FORM POWDER AND SOLVENT SOLUTION FOR INJECTION
     Route: 058
  31. OMALIZUMAB [Suspect]
     Active Substance: OMALIZUMAB
     Dosage: DOSAGE FORM POWDER AND SOLVENT SOLUTION FOR INJECTION
     Route: 058
  32. OMALIZUMAB [Suspect]
     Active Substance: OMALIZUMAB
     Dosage: 300 MG 1 DAY?DOSAGE FORM POWDER AND SOLVENT SOLUTION FOR INJECTION
     Route: 058
  33. OMALIZUMAB [Suspect]
     Active Substance: OMALIZUMAB
     Dosage: 300 MG?DOSAGE FORM POWDER AND SOLVENT SOLUTION FOR INJECTION
     Route: 058
  34. OMALIZUMAB [Suspect]
     Active Substance: OMALIZUMAB
     Dosage: 300 MG?DOSAGE FORM POWDER AND SOLVENT SOLUTION FOR INJECTION
     Route: 058
  35. OMALIZUMAB [Suspect]
     Active Substance: OMALIZUMAB
     Dosage: DOSAGE FORM POWDER AND SOLVENT SOLUTION FOR INJECTION
     Route: 058
  36. OMALIZUMAB [Suspect]
     Active Substance: OMALIZUMAB
     Dosage: DOSAGE FORM POWDER AND SOLVENT SOLUTION FOR INJECTION
     Route: 058
  37. OMALIZUMAB [Suspect]
     Active Substance: OMALIZUMAB
     Dosage: DOSAGE FORM POWDER AND SOLVENT SOLUTION FOR INJECTION
     Route: 058
  38. OMALIZUMAB [Suspect]
     Active Substance: OMALIZUMAB
     Dosage: DOSAGE FORM POWDER AND SOLVENT SOLUTION FOR INJECTION
     Route: 058
  39. OMALIZUMAB [Suspect]
     Active Substance: OMALIZUMAB
     Dosage: 300 MG?DOSAGE FORM POWDER AND SOLVENT SOLUTION FOR INJECTION
     Route: 058
  40. OMALIZUMAB [Suspect]
     Active Substance: OMALIZUMAB
     Dosage: 150 MG?DOSAGE FORM NOT SPECIFIED
     Route: 058
  41. OMALIZUMAB [Suspect]
     Active Substance: OMALIZUMAB
     Dosage: 150 MG 1EVERY 2 WEEKS?DOSAGE FORM POWDER AND SOLVENT FOR SOLUTION FOR INJECTION
     Route: 058
  42. OMALIZUMAB [Suspect]
     Active Substance: OMALIZUMAB
     Dosage: 300 MG?DOSAGE FORM POWDER AND SOLVENT SOLUTION FOR INJECTION
     Route: 058
  43. CEPHALEXIN [Suspect]
     Active Substance: CEPHALEXIN
     Indication: Eye discharge
     Dosage: 500 MG 4 EVERY 1 DAY?DOSAGE FORM NOT SPECIFIED?ROUTE OF ADMIN UNKNOWN
  44. CEPHALEXIN [Suspect]
     Active Substance: CEPHALEXIN
     Dosage: 500 MG 4 EVERY 1 DAY?DOSAGE FORM TABLET?ROUTE OF ADMIN UNKNOWN

REACTIONS (71)
  - Abdominal discomfort [Not Recovered/Not Resolved]
  - Allergy to metals [Not Recovered/Not Resolved]
  - Anxiety [Not Recovered/Not Resolved]
  - Arthralgia [Not Recovered/Not Resolved]
  - Arthritis [Not Recovered/Not Resolved]
  - Asthenia [Not Recovered/Not Resolved]
  - Asthma [Not Recovered/Not Resolved]
  - Asthma [Not Recovered/Not Resolved]
  - Back pain [Not Recovered/Not Resolved]
  - Blood pressure increased [Not Recovered/Not Resolved]
  - Breast pain [Not Recovered/Not Resolved]
  - Breast pain [Not Recovered/Not Resolved]
  - Burning sensation [Not Recovered/Not Resolved]
  - Chest discomfort [Not Recovered/Not Resolved]
  - Chest pain [Not Recovered/Not Resolved]
  - Chills [Not Recovered/Not Resolved]
  - Cough [Not Recovered/Not Resolved]
  - Cyst [Not Recovered/Not Resolved]
  - Dry skin [Not Recovered/Not Resolved]
  - Eczema [Not Recovered/Not Resolved]
  - Erythema [Not Recovered/Not Resolved]
  - Eye discharge [Not Recovered/Not Resolved]
  - Eye infection [Not Recovered/Not Resolved]
  - Eye pain [Not Recovered/Not Resolved]
  - Eye swelling [Not Recovered/Not Resolved]
  - Fatigue [Not Recovered/Not Resolved]
  - Feeling abnormal [Not Recovered/Not Resolved]
  - Feeling hot [Not Recovered/Not Resolved]
  - Headache [Not Recovered/Not Resolved]
  - Headache [Not Recovered/Not Resolved]
  - Hyperhidrosis [Not Recovered/Not Resolved]
  - Inappropriate schedule of product administration [Not Recovered/Not Resolved]
  - Influenza [Not Recovered/Not Resolved]
  - Influenza like illness [Not Recovered/Not Resolved]
  - Influenza like illness [Not Recovered/Not Resolved]
  - Injection site discomfort [Not Recovered/Not Resolved]
  - Intervertebral disc disorder [Not Recovered/Not Resolved]
  - Lymphadenopathy [Not Recovered/Not Resolved]
  - Malaise [Not Recovered/Not Resolved]
  - Myalgia [Not Recovered/Not Resolved]
  - Nasal congestion [Not Recovered/Not Resolved]
  - Nasopharyngitis [Not Recovered/Not Resolved]
  - Off label use [Not Recovered/Not Resolved]
  - Oropharyngeal pain [Not Recovered/Not Resolved]
  - Pain [Not Recovered/Not Resolved]
  - Pain in extremity [Not Recovered/Not Resolved]
  - Pneumonia [Not Recovered/Not Resolved]
  - Psychomotor hyperactivity [Not Recovered/Not Resolved]
  - Rash erythematous [Not Recovered/Not Resolved]
  - Reaction to azo-dyes [Not Recovered/Not Resolved]
  - Sinus pain [Not Recovered/Not Resolved]
  - Spinal pain [Not Recovered/Not Resolved]
  - Stress [Not Recovered/Not Resolved]
  - Thermal burn [Not Recovered/Not Resolved]
  - Weight decreased [Not Recovered/Not Resolved]
  - Abdominal pain [Not Recovered/Not Resolved]
  - Abdominal pain [Not Recovered/Not Resolved]
  - Abdominal pain upper [Not Recovered/Not Resolved]
  - Anaphylactic reaction [Not Recovered/Not Resolved]
  - Diarrhoea [Not Recovered/Not Resolved]
  - Diarrhoea [Not Recovered/Not Resolved]
  - Drug ineffective [Not Recovered/Not Resolved]
  - Hypersensitivity [Not Recovered/Not Resolved]
  - Injection site pain [Not Recovered/Not Resolved]
  - Pruritus [Not Recovered/Not Resolved]
  - Pruritus [Not Recovered/Not Resolved]
  - Urticaria [Not Recovered/Not Resolved]
  - Urticaria [Not Recovered/Not Resolved]
  - Urticaria [Not Recovered/Not Resolved]
  - Urticaria [Not Recovered/Not Resolved]
  - Urticaria [Not Recovered/Not Resolved]
